FAERS Safety Report 10024726 (Version 1)
Quarter: 2014Q1

REPORT INFORMATION
  Report Type: Spontaneous
  Country: US (occurrence: None)
  Receive Date: 20140318
  Receipt Date: 20140318
  Transmission Date: 20141002
  Serious: Yes (Hospitalization)
  Sender: FDA-Public Use
  Company Number: FK201400783

PATIENT
  Age: 55 Year
  Sex: Female
  Weight: 68.95 kg

DRUGS (3)
  1. DIPHENHYDRAMINE HYDROCHLORIDE [Suspect]
     Indication: LIP SWELLING
     Dosage: 50 MG, ONCE, INTRAVENOUS PUSH
     Route: 042
     Dates: start: 20140227, end: 20140227
  2. DIPHENHYDRAMINE HYDROCHLORIDE [Suspect]
     Indication: BLISTER
     Dosage: 50 MG, ONCE, INTRAVENOUS PUSH
     Route: 042
     Dates: start: 20140227, end: 20140227
  3. COREG (CARVEDILOL) [Concomitant]

REACTIONS (4)
  - Blood pressure increased [None]
  - Aphasia [None]
  - Asthenia [None]
  - Dizziness [None]
